FAERS Safety Report 9701412 (Version 3)
Quarter: 2015Q3

REPORT INFORMATION
  Report Type: Spontaneous
  Country: US (occurrence: US)
  Receive Date: 20131121
  Receipt Date: 20150803
  Transmission Date: 20151125
  Serious: No
  Sender: FDA-Public Use
  Company Number: US-GILEAD-2008-0016336

PATIENT
  Age: 74 Year
  Sex: Female
  Weight: 73.94 kg

DRUGS (20)
  1. NORVASC [Concomitant]
     Active Substance: AMLODIPINE BESYLATE
     Route: 048
  2. HYTRIN [Concomitant]
     Active Substance: TERAZOSIN HYDROCHLORIDE
     Route: 048
  3. CALCIUM [Concomitant]
     Active Substance: CALCIUM
     Route: 048
  4. OXYGEN. [Concomitant]
     Active Substance: OXYGEN
     Route: 045
  5. TOPROL XL [Concomitant]
     Active Substance: METOPROLOL SUCCINATE
     Route: 048
  6. ALTACE [Concomitant]
     Active Substance: RAMIPRIL
     Route: 048
  7. ALBUTEROL. [Concomitant]
     Active Substance: ALBUTEROL
     Route: 055
  8. ERGOCALCIFEROL/NICOTINAMIDE/RETINOL/ASCORBIC ACID/FOLIC ACID/PANTHENOL/RIBOFLAVIN/THIAMINE HYDROCHLO [Concomitant]
     Route: 048
  9. ASPIRIN. [Concomitant]
     Active Substance: ASPIRIN
     Route: 048
  10. PROCRIT [Concomitant]
     Active Substance: ERYTHROPOIETIN
     Route: 030
  11. MUCINEX [Concomitant]
     Active Substance: GUAIFENESIN
     Route: 048
  12. CELLCEPT [Concomitant]
     Active Substance: MYCOPHENOLATE MOFETIL\MYCOPHENOLATE MOFETIL HYDROCHLORIDE
     Route: 048
  13. SINGULAIR [Concomitant]
     Active Substance: MONTELUKAST SODIUM
     Route: 048
  14. PLAQUENIL [Concomitant]
     Active Substance: HYDROXYCHLOROQUINE SULFATE
     Route: 048
  15. METOLAZONE. [Concomitant]
     Active Substance: METOLAZONE
  16. POTASSIUM CHLORIDE. [Concomitant]
     Active Substance: POTASSIUM CHLORIDE
     Route: 048
  17. LETAIRIS [Suspect]
     Active Substance: AMBRISENTAN
     Indication: PULMONARY ARTERIAL HYPERTENSION
     Route: 048
     Dates: start: 20080225
  18. PREDNISONE. [Concomitant]
     Active Substance: PREDNISONE
     Route: 048
  19. CRESTOR [Concomitant]
     Active Substance: ROSUVASTATIN CALCIUM
     Route: 048
  20. LASIX [Concomitant]
     Active Substance: FUROSEMIDE
     Route: 048

REACTIONS (3)
  - Nasal discomfort [Unknown]
  - Peripheral swelling [Unknown]
  - Constipation [Unknown]
